FAERS Safety Report 8303882-6 (Version None)
Quarter: 2012Q2

REPORT INFORMATION
  Report Type: 
  Country: None (occurrence: None)
  Receive Date: 20120423
  Receipt Date: 20120417
  Transmission Date: 20120825
  Serious: Yes (Hospitalization)
  Sender: FDA-Public Use
  Company Number: PHHO2012IE005829

PATIENT
  Sex: Male
  Weight: 80 kg

DRUGS (2)
  1. OLMESARTAN MEDOXOMIL [Concomitant]
  2. TASIGNA [Suspect]
     Indication: CHRONIC MYELOID LEUKAEMIA
     Dosage: 300 MG, BID
     Route: 048
     Dates: start: 20090721

REACTIONS (1)
  - MYOCARDIAL INFARCTION [None]
